FAERS Safety Report 25810180 (Version 1)
Quarter: 2025Q3

REPORT INFORMATION
  Report Type: Spontaneous
  Country: US (occurrence: US)
  Receive Date: 20250917
  Receipt Date: 20250917
  Transmission Date: 20251021
  Serious: No
  Sender: CSL BEHRING
  Company Number: US-BEH-2025218652

PATIENT
  Sex: Male

DRUGS (4)
  1. PRIVIGEN [Suspect]
     Active Substance: HUMAN IMMUNOGLOBULIN G
     Indication: Immunoglobulins
     Dosage: 10 G, QMT
     Route: 042
     Dates: start: 202206
  2. PRIVIGEN [Suspect]
     Active Substance: HUMAN IMMUNOGLOBULIN G
     Dosage: 40 G, QMT
     Route: 042
     Dates: start: 202206
  3. SODIUM CHLORATE [Concomitant]
     Active Substance: SODIUM CHLORATE
  4. SODIUM CHLORIDE [Concomitant]
     Active Substance: SODIUM CHLORIDE

REACTIONS (4)
  - Chills [Unknown]
  - Back injury [Unknown]
  - Muscle spasms [Unknown]
  - Anxiety [Unknown]
